FAERS Safety Report 22142185 (Version 2)
Quarter: 2023Q2

REPORT INFORMATION
  Report Type: Report from Study
  Country: US (occurrence: US)
  Receive Date: 20230327
  Receipt Date: 20230417
  Transmission Date: 20230722
  Serious: Yes (Other)
  Sender: FDA-Public Use
  Company Number: US-PFIZER INC-PV202300050626

PATIENT
  Age: 69 Year
  Sex: Male

DRUGS (2)
  1. TALAZOPARIB [Suspect]
     Active Substance: TALAZOPARIB
     Indication: Prostate cancer
     Dosage: 1 MG, DAILY
     Route: 048
     Dates: start: 20230113
  2. AXITINIB [Suspect]
     Active Substance: AXITINIB
     Indication: Prostate cancer
     Dosage: 3 MG, 2X/DAY
     Route: 048
     Dates: start: 20230113

REACTIONS (2)
  - Second primary malignancy [Recovered/Resolved]
  - Squamous cell carcinoma [Recovered/Resolved]

NARRATIVE: CASE EVENT DATE: 20230314
